FAERS Safety Report 17112112 (Version 1)
Quarter: 2019Q4

REPORT INFORMATION
  Report Type: Report from Study
  Country: US (occurrence: US)
  Receive Date: 20191204
  Receipt Date: 20191204
  Transmission Date: 20200122
  Serious: Yes (Other)
  Sender: FDA-Public Use
  Company Number: US-TAIHO ONCOLOGY  INC-EU-2019-02988

PATIENT
  Age: 65 Year
  Sex: Female
  Weight: 49.94 kg

DRUGS (13)
  1. VITAMIN B-1 [Concomitant]
     Active Substance: THIAMINE HYDROCHLORIDE
     Dosage: NI
  2. LONSURF [Suspect]
     Active Substance: TIPIRACIL HYDROCHLORIDE\TRIFLURIDINE
     Indication: COLON CANCER
  3. LOVENOX [Suspect]
     Active Substance: ENOXAPARIN SODIUM
     Indication: PRODUCT USED FOR UNKNOWN INDICATION
     Route: 065
     Dates: end: 201909
  4. CEPHALEXIN. [Concomitant]
     Active Substance: CEPHALEXIN
     Dosage: NI
  5. STIVARGA [Suspect]
     Active Substance: REGORAFENIB
     Indication: PRODUCT USED FOR UNKNOWN INDICATION
     Route: 065
  6. POTASSIUM [Concomitant]
     Active Substance: POTASSIUM
     Dosage: NI
  7. FLOMAX [Concomitant]
     Active Substance: TAMSULOSIN HYDROCHLORIDE
     Dosage: NI
  8. VITAMIN B12 [Concomitant]
     Active Substance: CYANOCOBALAMIN
     Dosage: NI
  9. VITAMIN B-6 [Concomitant]
     Active Substance: PYRIDOXINE
     Dosage: NI
  10. LONSURF [Suspect]
     Active Substance: TIPIRACIL HYDROCHLORIDE\TRIFLURIDINE
     Indication: COLON CANCER METASTATIC
     Dosage: CYCLE 1 - LONSURF WAS PUT ON HOLD 2 DAYS EARLY?CURRENT CYCLE 2, STARTED ON 22/OCT/2019.
     Route: 048
     Dates: start: 20190910
  11. ALIGN [Concomitant]
     Active Substance: BIFIDOBACTERIUM LONGUM SUBSP. INFANTIS
     Dosage: NI
  12. VALCYTE [Concomitant]
     Active Substance: VALGANCICLOVIR HYDROCHLORIDE
     Dosage: NI
  13. VIT E DL-ALP [Concomitant]
     Dosage: NI

REACTIONS (15)
  - Haemoglobin decreased [Unknown]
  - Platelet count decreased [Recovering/Resolving]
  - Weight decreased [Unknown]
  - Rash [Unknown]
  - Decreased appetite [Not Recovered/Not Resolved]
  - White blood cell count decreased [Recovering/Resolving]
  - Blister [Unknown]
  - Pyrexia [Unknown]
  - Cystitis [Unknown]
  - Carcinoembryonic antigen increased [Unknown]
  - Urethral prolapse [Unknown]
  - Fatigue [Not Recovered/Not Resolved]
  - Urinary bladder haemorrhage [Unknown]
  - Neutrophil count decreased [Unknown]
  - Night sweats [Recovered/Resolved]

NARRATIVE: CASE EVENT DATE: 2019
